FAERS Safety Report 17617909 (Version 1)
Quarter: 2020Q2

REPORT INFORMATION
  Report Type: Report from Study
  Country: US (occurrence: US)
  Receive Date: 20200402
  Receipt Date: 20200402
  Transmission Date: 20200713
  Serious: Yes (Other)
  Sender: FDA-Public Use
  Company Number: NVSC2020US088120

PATIENT
  Age: 42 Year
  Sex: Female

DRUGS (4)
  1. ENTRESTO [Suspect]
     Active Substance: SACUBITRIL\VALSARTAN
     Dosage: 1 DF (49 MG/51 MG), BID
     Route: 065
     Dates: start: 202001
  2. ENTRESTO [Suspect]
     Active Substance: SACUBITRIL\VALSARTAN
     Dosage: UNK
     Route: 065
     Dates: start: 202001
  3. ENTRESTO [Suspect]
     Active Substance: SACUBITRIL\VALSARTAN
     Dosage: 1.5 DF (24 MG/26 MG), BID
     Route: 065
     Dates: start: 202003
  4. ENTRESTO [Suspect]
     Active Substance: SACUBITRIL\VALSARTAN
     Indication: CARDIAC FAILURE
     Dosage: UNK
     Route: 065
     Dates: start: 201903

REACTIONS (4)
  - Feeling abnormal [Recovering/Resolving]
  - Wrong technique in product usage process [Unknown]
  - Cardiac failure [Unknown]
  - Fatigue [Unknown]

NARRATIVE: CASE EVENT DATE: 201903
